FAERS Safety Report 5401042-X (Version None)
Quarter: 2007Q3

REPORT INFORMATION
  Report Type: 
  Country: None (occurrence: None)
  Receive Date: 20070731
  Receipt Date: 20070726
  Transmission Date: 20080115
  Serious: Yes (Hospitalization)
  Sender: FDA-Public Use
  Company Number: SEWYE090826JUL07

PATIENT
  Sex: Male
  Weight: 102 kg

DRUGS (1)
  1. CYCLOSPORINE [Suspect]
     Indication: PROPHYLAXIS AGAINST TRANSPLANT REJECTION
     Dosage: 350MG DOSE FREQUENCY NOT STATED
     Route: 048
     Dates: start: 20070601

REACTIONS (1)
  - LYMPHOCELE [None]
